FAERS Safety Report 8572918-X (Version None)
Quarter: 2012Q2

REPORT INFORMATION
  Report Type: 
  Country: None (occurrence: None)
  Receive Date: 20120420
  Receipt Date: 20120420
  Transmission Date: 20120825
  Serious: Yes (Other)
  Sender: FDA-Public Use
  Company Number: ALL1-2011-04417

PATIENT
  Age: 37 Year
  Sex: Female
  Weight: 54.4 kg

DRUGS (6)
  1. LAMICTAL [Concomitant]
  2. PRODODION CAPSULE [Concomitant]
  3. KLONOPIN [Concomitant]
  4. VYVANSE [Suspect]
     Indication: ATTENTION DEFICIT/HYPERACTIVITY DISORDER
     Dosage: 30 MG, 1X/DAY, QD, ORAL
     Route: 048
     Dates: start: 20111001
  5. KEPPRA [Concomitant]
  6. PREMARIN [Concomitant]

REACTIONS (1)
  - CONVULSION [None]
